FAERS Safety Report 8952660 (Version 2)
Quarter: 2013Q1

REPORT INFORMATION
  Report Type: Spontaneous
  Country: US (occurrence: US)
  Receive Date: 20121205
  Receipt Date: 20130131
  Transmission Date: 20140127
  Serious: No
  Sender: FDA-Public Use
  Company Number: US-009507513-1212USA000858

PATIENT
  Age: 48 Year
  Sex: Female

DRUGS (2)
  1. EMEND FOR INJECTION [Suspect]
     Dosage: 150 MG/ ONCE PER CHEMO CYCLE
     Route: 042
  2. DOXORUBICIN [Concomitant]

REACTIONS (2)
  - Infusion site irritation [Recovered/Resolved]
  - Infusion site pain [Recovered/Resolved]
